FAERS Safety Report 12683595 (Version 2)
Quarter: 2016Q3

REPORT INFORMATION
  Report Type: Report from Study
  Country: BR (occurrence: BR)
  Receive Date: 20160825
  Receipt Date: 20160914
  Transmission Date: 20161109
  Serious: Yes (Other)
  Sender: FDA-Public Use
  Company Number: BR-JNJFOC-20160817663

PATIENT
  Age: 58 Year
  Sex: Female
  Weight: 56 kg

DRUGS (10)
  1. METHOTREXATE. [Concomitant]
     Active Substance: METHOTREXATE
     Route: 065
  2. TRAMADOL. [Concomitant]
     Active Substance: TRAMADOL
     Route: 065
  3. SIMPONI [Suspect]
     Active Substance: GOLIMUMAB
     Indication: RHEUMATOID ARTHRITIS
     Route: 058
     Dates: start: 20160229, end: 20160801
  4. VITAMIN D [Concomitant]
     Active Substance: CHOLECALCIFEROL
     Route: 065
  5. PROFENID [Concomitant]
     Active Substance: KETOPROFEN
     Route: 065
  6. PREBICTAL [Concomitant]
     Active Substance: PREGABALIN
     Route: 065
  7. TAMIRAM [Concomitant]
     Active Substance: LEVOFLOXACIN
     Route: 065
  8. METROFER [Concomitant]
     Route: 065
  9. CITALOPRAM [Concomitant]
     Active Substance: CITALOPRAM HYDROBROMIDE
     Route: 065
  10. PANTOPRAZOL [Concomitant]
     Active Substance: PANTOPRAZOLE SODIUM
     Route: 065

REACTIONS (3)
  - Decreased immune responsiveness [Unknown]
  - Neoplasm malignant [Unknown]
  - Pleural disorder [Not Recovered/Not Resolved]

NARRATIVE: CASE EVENT DATE: 201607
